FAERS Safety Report 6895180-2 (Version None)
Quarter: 2010Q3

REPORT INFORMATION
  Report Type: 
  Country: None (occurrence: None)
  Receive Date: 20100728
  Receipt Date: 20100714
  Transmission Date: 20110219
  Serious: Yes (Hospitalization, Other)
  Sender: FDA-Public Use
  Company Number: CRC-10-105

PATIENT
  Sex: Male
  Weight: 95.2554 kg

DRUGS (9)
  1. PHENYTOIN SODIUM [Suspect]
     Indication: CONVULSION PROPHYLAXIS
     Dosage: 3 CAPS. TWICE DAILY
  2. HYTRIN [Concomitant]
  3. AVODART [Concomitant]
  4. TRANDOLAPRIL [Concomitant]
  5. SIMVASTATIN [Concomitant]
  6. ALLOPURINOL [Concomitant]
  7. CHLORTHALIDONE [Concomitant]
  8. EOLBIC TABLETS [Concomitant]
  9. OCCASIONAL TESTOSTERONE INJECTION [Concomitant]

REACTIONS (2)
  - ANTICONVULSANT DRUG LEVEL INCREASED [None]
  - CONVULSION [None]
